FAERS Safety Report 18021098 (Version 1)
Quarter: 2020Q3

REPORT INFORMATION
  Report Type: Other
  Country: CN (occurrence: CN)
  Receive Date: 20200714
  Receipt Date: 20200714
  Transmission Date: 20201103
  Serious: Yes (Other)
  Sender: FDA-Public Use
  Company Number: CN-ROCHE-2639097

PATIENT
  Sex: Female

DRUGS (8)
  1. DEXAMETHASONE. [Concomitant]
     Active Substance: DEXAMETHASONE
     Dosage: 6 HOURS BEFORE CHEMOTHERAPY
     Route: 048
  2. CIMETIDINE [Concomitant]
     Active Substance: CIMETIDINE
     Indication: ALLERGY PROPHYLAXIS
     Dosage: 30 MIN BEFORE CHEMOTHERAPY
     Route: 040
  3. LIDOCAINE. [Concomitant]
     Active Substance: LIDOCAINE
     Indication: ANAESTHESIA
  4. CISPLATIN. [Suspect]
     Active Substance: CISPLATIN
     Indication: OVARIAN CANCER
     Dosage: ON DAY2
     Route: 041
  5. AZASETRON [Concomitant]
     Active Substance: AZASETRON
     Indication: VOMITING
  6. BEVACIZUMAB. [Suspect]
     Active Substance: BEVACIZUMAB
     Indication: OVARIAN CANCER
     Dosage: WITH NORMAL SALINE 3000 ML, INTO THE ABDOMINAL CAVITY WITH THE PERFUSION AMOUNT OF 3000?4000 ML.
     Route: 033
  7. PACLITAXEL. [Suspect]
     Active Substance: PACLITAXEL
     Indication: OVARIAN CANCER
     Route: 041
  8. POLYENE PHOSPHATIDYLCHOLINE [Concomitant]
     Active Substance: PHOSPHOLIPID

REACTIONS (10)
  - Diarrhoea [Unknown]
  - Cardiotoxicity [Unknown]
  - Myelosuppression [Unknown]
  - Hepatic function abnormal [Unknown]
  - Intentional product use issue [Unknown]
  - Nausea [Unknown]
  - Renal impairment [Unknown]
  - Neuropathy peripheral [Unknown]
  - Vomiting [Unknown]
  - Off label use [Unknown]
